FAERS Safety Report 9617721 (Version 4)
Quarter: 2013Q4

REPORT INFORMATION
  Report Type: Report from Study
  Country: BR (occurrence: BR)
  Receive Date: 20131011
  Receipt Date: 20131203
  Transmission Date: 20140711
  Serious: Yes (Hospitalization, Other)
  Sender: FDA-Public Use
  Company Number: PHHY2013BR114455

PATIENT
  Sex: Male

DRUGS (3)
  1. EXELON PATCH [Suspect]
     Dosage: 4.6 MG, DAILY (PATCH 5 CM2)
     Route: 062
  2. EXELON PATCH [Suspect]
     Dosage: 9.5 MG, DAILY (PATCH 10 CM2)
     Route: 062
  3. EXELON PATCH [Suspect]
     Dosage: UNK UKN, UNK

REACTIONS (6)
  - Influenza [Unknown]
  - Diabetes mellitus [Unknown]
  - Delirium [Unknown]
  - Disorientation [Unknown]
  - Application site erythema [Recovering/Resolving]
  - Application site pruritus [Recovering/Resolving]
